FAERS Safety Report 16952751 (Version 1)
Quarter: 2019Q4

REPORT INFORMATION
  Report Type: Spontaneous
  Country: US (occurrence: US)
  Receive Date: 20191023
  Receipt Date: 20191023
  Transmission Date: 20200122
  Serious: Yes (Other)
  Sender: FDA-Public Use
  Company Number: US-PFIZER INC-2019455335

PATIENT
  Age: 52 Year

DRUGS (1)
  1. CELEBREX [Suspect]
     Active Substance: CELECOXIB
     Dosage: UNK

REACTIONS (6)
  - Epilepsy [Unknown]
  - Pain [Unknown]
  - Fall [Unknown]
  - Mobility decreased [Unknown]
  - Spinal disorder [Unknown]
  - Gait inability [Unknown]
